FAERS Safety Report 8133375-0 (Version None)
Quarter: 2012Q1

REPORT INFORMATION
  Report Type: 
  Country: None (occurrence: None)
  Receive Date: 20120103
  Receipt Date: 20110920
  Transmission Date: 20120608
  Serious: No
  Sender: FDA-Public Use
  Company Number: AE-2011-001150

PATIENT
  Sex: Female

DRUGS (7)
  1. RIBAVIRIN [Concomitant]
  2. INTERFERON [Concomitant]
  3. HYDROCHLOROTHIAZIDE [Concomitant]
  4. ZIAC [Concomitant]
  5. DILTIAZEM [Concomitant]
  6. MULTIVITAMIN [Concomitant]
  7. INCIVEK [Suspect]
     Dosage: (3 IN 1 D),ORAL
     Route: 048
     Dates: start: 20110820

REACTIONS (2)
  - HAEMORRHOIDS [None]
  - ORAL PAIN [None]
